FAERS Safety Report 12967618 (Version 2)
Quarter: 2016Q4

REPORT INFORMATION
  Report Type: Spontaneous
  Country: ES (occurrence: ES)
  Receive Date: 20161123
  Receipt Date: 20161213
  Transmission Date: 20170207
  Serious: Yes (Hospitalization)
  Sender: FDA-Public Use
  Company Number: PHHY2016ES158387

PATIENT
  Age: 51 Year
  Sex: Male

DRUGS (1)
  1. COSENTYX [Suspect]
     Active Substance: SECUKINUMAB
     Indication: ANKYLOSING SPONDYLITIS
     Dosage: 150 MG, UNK
     Route: 058
     Dates: start: 20160821, end: 20161021

REACTIONS (9)
  - Pyrexia [Unknown]
  - Renal failure [Unknown]
  - Malaise [Unknown]
  - Systemic candida [Recovering/Resolving]
  - Abscess neck [Recovering/Resolving]
  - Cellulitis [Recovering/Resolving]
  - Mediastinal abscess [Recovering/Resolving]
  - Respiratory tract inflammation [Recovering/Resolving]
  - Tooth abscess [Recovering/Resolving]

NARRATIVE: CASE EVENT DATE: 20161001
